FAERS Safety Report 9162637 (Version 3)
Quarter: 2014Q1

REPORT INFORMATION
  Report Type: Spontaneous
  Country: GB (occurrence: None)
  Receive Date: 20130225
  Receipt Date: 20140128
  Transmission Date: 20141002
  Serious: Yes (Other)
  Sender: FDA-Public Use
  Company Number: AUR-APL-2013-01522

PATIENT
  Age: 49 Year
  Sex: Male
  Weight: 57 kg

DRUGS (3)
  1. RIBAVIRIN [Suspect]
     Indication: HEPATITIS C
     Dosage: 1000 MG (1000MG 1 IN 1 D), ORAL
     Dates: start: 20121210, end: 20130108
  2. PEGINTERFERON ALFA-2B (PEGINTERFERON ALFA-2B) [Suspect]
     Indication: HEPATITIS C
     Dosage: (180 MCG, 1 IN 1WK) SUBCUTANEOUS
     Dates: start: 20121210, end: 20130108
  3. TELAPREVIR [Suspect]
     Route: 048

REACTIONS (3)
  - Retinal exudates [None]
  - Vitreous floaters [None]
  - Retinal haemorrhage [None]
